FAERS Safety Report 11452276 (Version 1)
Quarter: 2015Q3

REPORT INFORMATION
  Report Type: Spontaneous
  Country: US (occurrence: US)
  Receive Date: 20150831
  Receipt Date: 20150831
  Transmission Date: 20151125
  Serious: No
  Sender: FDA-Public Use
  Company Number: US-ELI_LILLY_AND_COMPANY-US200907003817

PATIENT
  Sex: Male

DRUGS (1)
  1. CYMBALTA [Suspect]
     Active Substance: DULOXETINE HYDROCHLORIDE
     Indication: PAIN

REACTIONS (3)
  - Constipation [Unknown]
  - Intentional product misuse [Unknown]
  - Dry mouth [Unknown]
